FAERS Safety Report 14994996 (Version 1)
Quarter: 2018Q2

REPORT INFORMATION
  Report Type: Spontaneous
  Country: US (occurrence: US)
  Receive Date: 20180611
  Receipt Date: 20180611
  Transmission Date: 20180711
  Serious: Yes (Hospitalization, Other)
  Sender: FDA-Public Use
  Company Number: US-AMAG PHARMACEUTICALS, INC.-AMAG201802804

PATIENT
  Age: 82 Year
  Sex: Male

DRUGS (1)
  1. FERAHEME [Suspect]
     Active Substance: FERUMOXYTOL NON-STOICHIOMETRIC MAGNETITE
     Indication: PRODUCT USED FOR UNKNOWN INDICATION
     Dosage: 510 MG, UNK
     Route: 042

REACTIONS (4)
  - Anaphylactic reaction [Unknown]
  - Abdominal pain [Unknown]
  - Erythema [Unknown]
  - Hypotension [Unknown]

NARRATIVE: CASE EVENT DATE: 20180430
